FAERS Safety Report 8261845-3 (Version None)
Quarter: 2012Q2

REPORT INFORMATION
  Report Type: 
  Country: None (occurrence: None)
  Receive Date: 20120405
  Receipt Date: 20120323
  Transmission Date: 20120825
  Serious: Yes (Other)
  Sender: FDA-Public Use
  Company Number: US-SHIRE-ALL1-2012-00908

PATIENT
  Sex: Female
  Weight: 61.224 kg

DRUGS (6)
  1. CLONAZEPAM [Concomitant]
     Indication: PANIC DISORDER
     Dosage: 1 MG, 2X/DAY:BID
     Route: 065
     Dates: start: 20111107, end: 20111118
  2. CLONAZEPAM [Concomitant]
     Indication: ANXIETY
  3. AMBIEN [Concomitant]
     Indication: INSOMNIA
     Dosage: 10 MG, 1X/DAY:QD
     Route: 065
     Dates: start: 20111107
  4. VYVANSE [Suspect]
     Dosage: 30 MG, 1X/DAY:QD
     Route: 048
     Dates: end: 20111119
  5. PRISTIQ [Concomitant]
     Indication: DEPRESSION
     Dosage: 50 MG, 1X/DAY:QD
     Route: 048
     Dates: start: 20111107
  6. VYVANSE [Suspect]
     Indication: ATTENTION DEFICIT/HYPERACTIVITY DISORDER
     Dosage: 50 MG, 1X/DAY:QD
     Route: 048
     Dates: start: 20111120, end: 20111127

REACTIONS (1)
  - OEDEMA PERIPHERAL [None]
